FAERS Safety Report 15271798 (Version 1)
Quarter: 2018Q3

REPORT INFORMATION
  Report Type: Spontaneous
  Country: FR (occurrence: FR)
  Receive Date: 20180813
  Receipt Date: 20180813
  Transmission Date: 20181010
  Serious: Yes (Hospitalization)
  Sender: FDA-Public Use
  Company Number: FR-TEVA-2018-FR-939644

PATIENT
  Age: 72 Year
  Sex: Male

DRUGS (6)
  1. XATRAL LP [Suspect]
     Active Substance: ALFUZOSIN
     Indication: PROSTATE CANCER
     Route: 048
     Dates: start: 20170627
  2. ESOMEPRAZOLE [Suspect]
     Active Substance: ESOMEPRAZOLE
     Route: 048
     Dates: start: 20170627
  3. PARACETAMOL [Suspect]
     Active Substance: ACETAMINOPHEN
     Dosage: 6 DOSAGE FORMS DAILY;
     Route: 048
     Dates: start: 20170627
  4. ESOMEPRAZOLE [Suspect]
     Active Substance: ESOMEPRAZOLE
     Dosage: 3 DOSAGE FORMS DAILY;
     Route: 048
  5. XATRAL LP [Suspect]
     Active Substance: ALFUZOSIN
     Indication: PROSTATE CANCER
     Dosage: 3 DOSAGE FORMS DAILY;
     Route: 048
     Dates: start: 20171004
  6. DECAPEPTYL [Concomitant]
     Active Substance: TRIPTORELIN
     Dosage: FREQUENCY 1/3 MONTHS
     Route: 030
     Dates: start: 20170330

REACTIONS (4)
  - Dysstasia [Unknown]
  - Accidental overdose [Unknown]
  - Wrong drug administered [Unknown]
  - Blood urine present [Unknown]

NARRATIVE: CASE EVENT DATE: 2017
